FAERS Safety Report 24931718 (Version 1)
Quarter: 2025Q1

REPORT INFORMATION
  Report Type: Report from Study
  Country: TH (occurrence: TH)
  Receive Date: 20250205
  Receipt Date: 20250205
  Transmission Date: 20250409
  Serious: No
  Sender: EXELIXIS
  Company Number: TH-IPSEN Group, Research and Development-2024-11411

PATIENT
  Age: 61 Year
  Sex: Male

DRUGS (1)
  1. CABOMETYX [Suspect]
     Active Substance: CABOZANTINIB S-MALATE
     Indication: Renal cell carcinoma
     Dosage: 60 MG, QD
     Route: 048
     Dates: start: 20240402, end: 20240528

REACTIONS (7)
  - Mouth ulceration [Unknown]
  - Diarrhoea [Unknown]
  - Nausea [Unknown]
  - Decreased appetite [Unknown]
  - Weight decreased [Unknown]
  - Fatigue [Unknown]
  - Drug ineffective [Unknown]
